FAERS Safety Report 9276076 (Version 1)
Quarter: 2013Q2

REPORT INFORMATION
  Report Type: Spontaneous
  Country: US (occurrence: US)
  Receive Date: 20130507
  Receipt Date: 20130507
  Transmission Date: 20140414
  Serious: No
  Sender: FDA-Public Use
  Company Number: US-009507513-1305USA002218

PATIENT
  Age: 5 Year
  Sex: Male

DRUGS (2)
  1. CLARINEX [Suspect]
     Indication: HYPERSENSITIVITY
     Dosage: 2.5 MG, REDITAB 2.5, QD
     Route: 048
     Dates: start: 20130426, end: 20130502
  2. DIMETAPP (NEW FORMULA) [Concomitant]

REACTIONS (1)
  - Aggression [Unknown]
